FAERS Safety Report 12095359 (Version 2)
Quarter: 2016Q2

REPORT INFORMATION
  Report Type: Report from Study
  Country: US (occurrence: US)
  Receive Date: 20160219
  Receipt Date: 20160509
  Transmission Date: 20160815
  Serious: Yes (Other)
  Sender: FDA-Public Use
  Company Number: US-ABBVIE-16P-163-1561308-00

PATIENT
  Sex: Female

DRUGS (1)
  1. DEPAKOTE [Suspect]
     Active Substance: DIVALPROEX SODIUM
     Indication: PRODUCT USED FOR UNKNOWN INDICATION
     Route: 048
     Dates: start: 201512

REACTIONS (9)
  - Orthostatic hypertension [Unknown]
  - Disability [Unknown]
  - Activities of daily living impaired [Unknown]
  - Bipolar disorder [Unknown]
  - Hyperhidrosis [Unknown]
  - Amnesia [Unknown]
  - Anxiety [Unknown]
  - Migraine [Unknown]
  - Pituitary tumour benign [Unknown]
